FAERS Safety Report 19705600 (Version 3)
Quarter: 2022Q4

REPORT INFORMATION
  Report Type: Spontaneous
  Country: DE (occurrence: DE)
  Receive Date: 20210817
  Receipt Date: 20221020
  Transmission Date: 20230112
  Serious: Yes (Hospitalization, Other)
  Sender: FDA-Public Use
  Company Number: None

PATIENT
  Age: 45 Year
  Sex: Female
  Weight: 80 kg

DRUGS (10)
  1. CLOPIDOGREL [Suspect]
     Active Substance: CLOPIDOGREL BISULFATE
     Indication: Product used for unknown indication
     Dosage: 75 MG, 2-0-0-0, TABLET
     Route: 048
  2. ASPIRIN [Suspect]
     Active Substance: ASPIRIN
     Indication: Product used for unknown indication
     Dosage: 100 MG, 0-1-0-0, TABLET
     Route: 048
  3. AMLODIPINE BESYLATE [Concomitant]
     Active Substance: AMLODIPINE BESYLATE
     Indication: Product used for unknown indication
     Dosage: 5 MG, 1-0-1-0, TABLET
     Route: 048
  4. ATORVASTATIN [Concomitant]
     Active Substance: ATORVASTATIN
     Indication: Product used for unknown indication
     Dosage: 80 MG, 0-0-1-0, TABLET
     Route: 048
  5. Candesartan comp. Aurobindo 16 mg/12.5 mg [Concomitant]
     Indication: Product used for unknown indication
     Dosage: 16/12.5 MG, 1-0-1-0, TABLET
     Route: 048
  6. Humalog 100/ml [Concomitant]
     Indication: Product used for unknown indication
     Dosage: 100/1 IE/ML, 6-6-0-0, SOLUTION FOR INJECTION/INFUSION
     Route: 058
  7. Levemir FlexPen 300E. 100E./ml [Concomitant]
     Indication: Product used for unknown indication
     Dosage: 300/3 IE/ML, 0-0-0-12, SOLUTION FOR INJECTION/INFUSION
     Route: 058
  8. METOPROLOL [Concomitant]
     Active Substance: METOPROLOL
     Indication: Product used for unknown indication
     Dosage: 47.5 MG, 1-0-1-0, RETARD-TABLET
     Route: 048
  9. MOXONIDINE [Concomitant]
     Active Substance: MOXONIDINE
     Indication: Product used for unknown indication
     Dosage: 0.2 MG, 1-0-1-0, TABLET
     Route: 048
  10. VICTOZA [Concomitant]
     Active Substance: LIRAGLUTIDE
     Indication: Product used for unknown indication
     Dosage: 18/3 MG/ML, 1-0-0-0, SOLUTION FOR INJECTION/INFUSION
     Route: 058

REACTIONS (4)
  - Cerebrovascular accident [Not Recovered/Not Resolved]
  - Malaise [Not Recovered/Not Resolved]
  - Presyncope [Not Recovered/Not Resolved]
  - Duodenal ulcer haemorrhage [Unknown]
